FAERS Safety Report 7075598-8 (Version None)
Quarter: 2010Q4

REPORT INFORMATION
  Report Type: 
  Country: None (occurrence: None)
  Receive Date: 20101030
  Receipt Date: 20101011
  Transmission Date: 20110411
  Serious: No
  Sender: FDA-Public Use
  Company Number: US-WYE-H18105710

PATIENT

DRUGS (1)
  1. PRISTIQ [Suspect]
     Dosage: UNSPECIFIED

REACTIONS (1)
  - SEXUAL DYSFUNCTION [None]
